FAERS Safety Report 12842275 (Version 2)
Quarter: 2016Q4

REPORT INFORMATION
  Report Type: Spontaneous
  Country: US (occurrence: US)
  Receive Date: 20161013
  Receipt Date: 20161108
  Transmission Date: 20170207
  Serious: Yes (Other)
  Sender: FDA-Public Use
  Company Number: US-JAZZ-2016-US-019478

PATIENT
  Sex: Male

DRUGS (1)
  1. XYREM [Suspect]
     Active Substance: SODIUM OXYBATE
     Indication: PRODUCT USED FOR UNKNOWN INDICATION
     Route: 048

REACTIONS (6)
  - Irritability [Recovered/Resolved]
  - Medication error [Unknown]
  - Bradycardia [Recovered/Resolved]
  - Bruxism [Unknown]
  - Dystonia [Recovered/Resolved]
  - Agitation [Recovered/Resolved]
